FAERS Safety Report 5371547-9 (Version None)
Quarter: 2007Q2

REPORT INFORMATION
  Report Type: 
  Country: None (occurrence: None)
  Receive Date: 20070625
  Receipt Date: 20070625
  Transmission Date: 20071010
  Serious: Yes (Hospitalization)
  Sender: FDA-Public Use
  Company Number: None

PATIENT
  Age: 65 Year
  Sex: Male

DRUGS (2)
  1. LISINOPRIL [Suspect]
     Indication: HYPERTENSION
     Dosage: 20 MG EVERY DAY PO
     Route: 048
     Dates: start: 20000816
  2. TRIAMTERENE AND HYDROCHLOROTHIAZIDE [Suspect]
     Dosage: 1 TAB EVERY DAY PO
     Route: 048

REACTIONS (2)
  - HYPOTENSION [None]
  - WRONG DRUG ADMINISTERED [None]
